FAERS Safety Report 5270700-2 (Version None)
Quarter: 2007Q1

REPORT INFORMATION
  Report Type: 
  Country: None (occurrence: None)
  Receive Date: 20070321
  Receipt Date: 20070309
  Transmission Date: 20070707
  Serious: Yes (Other)
  Sender: FDA-Public Use
  Company Number: IE-JNJFOC-20070205241

PATIENT
  Sex: Male
  Weight: 83.3 kg

DRUGS (4)
  1. REMICADE [Suspect]
     Route: 042
  2. REMICADE [Suspect]
     Indication: PSORIATIC ARTHROPATHY
     Dosage: 3 MG/KG
     Route: 042
  3. METHOTREXATE [Concomitant]
  4. FOLIC ACID [Concomitant]

REACTIONS (7)
  - CHEST PAIN [None]
  - CHILLS [None]
  - DISCOMFORT [None]
  - INFUSION RELATED REACTION [None]
  - MALAISE [None]
  - PYREXIA [None]
  - RASH [None]
